FAERS Safety Report 24437210 (Version 1)
Quarter: 2024Q4

REPORT INFORMATION
  Report Type: Spontaneous
  Country: US (occurrence: None)
  Receive Date: 20241011
  Receipt Date: 20241011
  Transmission Date: 20250115
  Serious: Yes (Death)
  Sender: Public
  Company Number: None

PATIENT
  Age: 85 Year
  Sex: Female
  Weight: 72 kg

DRUGS (2)
  1. ENOXAPARIN [Suspect]
     Active Substance: ENOXAPARIN
     Indication: Atrial fibrillation
     Dosage: FREQUENCY : TWICE A DAY;?
     Route: 058
  2. OXYCODONE HYDROCHLORIDE [Suspect]
     Active Substance: OXYCODONE HYDROCHLORIDE
     Dosage: OTHER FREQUENCY : OTHER;?
     Route: 048

REACTIONS (10)
  - Death [None]
  - Sedation [None]
  - Tachycardia [None]
  - Thrombocytopenia [None]
  - Platelet count decreased [None]
  - Drug abuse [None]
  - Pyrexia [None]
  - Atrial fibrillation [None]
  - Therapy cessation [None]
  - Heparin-induced thrombocytopenia [None]

NARRATIVE: CASE EVENT DATE: 20240605
